FAERS Safety Report 5975460-5 (Version None)
Quarter: 2008Q4

REPORT INFORMATION
  Report Type: 
  Country: None (occurrence: None)
  Receive Date: 20081202
  Receipt Date: 20081124
  Transmission Date: 20090506
  Serious: Yes (Hospitalization)
  Sender: FDA-Public Use
  Company Number: US-BIOGENIDEC-2008BI032070

PATIENT
  Age: 55 Year
  Sex: Female

DRUGS (3)
  1. AVONEX [Suspect]
     Indication: MULTIPLE SCLEROSIS
     Route: 030
     Dates: start: 19980801, end: 20051201
  2. AVONEX [Suspect]
     Route: 030
     Dates: start: 20060301, end: 20080101
  3. AVONEX [Suspect]
     Route: 030
     Dates: start: 20080401, end: 20080901

REACTIONS (2)
  - DEVICE RELATED INFECTION [None]
  - REVISION OF INTERNAL FIXATION [None]
